FAERS Safety Report 8346750-6 (Version None)
Quarter: 2012Q2

REPORT INFORMATION
  Report Type: 
  Country: None (occurrence: None)
  Receive Date: 20120509
  Receipt Date: 20120507
  Transmission Date: 20120825
  Serious: Yes (Death)
  Sender: FDA-Public Use
  Company Number: AU-B.I. PHARMACEUTICALS,INC./RIDGEFIELD-2012-AU-00789AU

PATIENT
  Sex: Male

DRUGS (15)
  1. FLUTICASONE PROPIONATE/SALMETEROL [Concomitant]
     Dosage: 250/50
     Route: 055
  2. PRADAXA [Suspect]
     Indication: ATRIAL FIBRILLATION
  3. MOVIPREP [Concomitant]
  4. SPIRIVA [Concomitant]
     Dosage: 18 MCG
     Route: 055
  5. PRADAXA [Suspect]
     Indication: CEREBROVASCULAR ACCIDENT PROPHYLAXIS
     Dosage: 220 MG
     Dates: start: 20111014
  6. PANADOL OSTEO [Concomitant]
     Dosage: 3990 MG
  7. VENTOLIN CFC-FREE INHALER [Concomitant]
     Route: 055
  8. DIGOXIN [Concomitant]
     Dosage: 125 MCG
  9. NEO-B12 INJECTION [Concomitant]
     Dosage: MCG/ML 1 ML
  10. TRAMADOL HYDROCHLORIDE [Concomitant]
     Dosage: 100MG/ML
     Route: 048
  11. CHEMMART FRUSEMIDE [Concomitant]
     Dosage: 40 MG
  12. LEVOTHYROXINE SODIUM [Concomitant]
     Dosage: 125 MCG
  13. RAMACE [Concomitant]
     Dosage: 5 MG
  14. PANDEINE FORTE [Concomitant]
  15. BICOR [Concomitant]
     Dosage: 2.5 MG

REACTIONS (3)
  - CARDIAC ARREST [None]
  - LOSS OF CONSCIOUSNESS [None]
  - RENAL IMPAIRMENT [None]
